FAERS Safety Report 11267404 (Version 2)
Quarter: 2018Q1

REPORT INFORMATION
  Report Type: Spontaneous
  Country: US (occurrence: US)
  Receive Date: 20150713
  Receipt Date: 20180115
  Transmission Date: 20180508
  Serious: Yes (Death, Hospitalization)
  Sender: FDA-Public Use
  Company Number: US-MYLANLABS-2015M1022308

PATIENT
  Age: 58 Year
  Sex: Female
  Weight: 90 kg

DRUGS (9)
  1. DEPO-MEDROL [Suspect]
     Active Substance: METHYLPREDNISOLONE ACETATE
     Indication: SINUSITIS
     Dosage: 100 MG, ONCE, RIGHT BUTTOCK
     Route: 030
     Dates: start: 20150602, end: 20150602
  2. CYANOCOBALAMIN. [Suspect]
     Active Substance: CYANOCOBALAMIN
     Dosage: 1000 ?G, UNK
     Route: 065
  3. LIDOCAINE. [Suspect]
     Active Substance: LIDOCAINE
     Indication: MEDICATION DILUTION
  4. LIDOCAINE. [Suspect]
     Active Substance: LIDOCAINE
     Indication: SINUSITIS
     Dosage: UNK, DILUTE WITH CEFTRIAXONE, IN LEFT BUTTOCK
     Route: 030
     Dates: start: 20150602, end: 20150602
  5. CEFTRIAXONE SANDOZ [Suspect]
     Active Substance: CEFTRIAXONE
     Indication: SINUSITIS
     Dosage: 1 G, ONCE, LEFT BUTTOCK
     Route: 030
     Dates: start: 20150602, end: 20150602
  6. CYANOCOBALAMIN. [Suspect]
     Active Substance: CYANOCOBALAMIN
     Dosage: UNK ?G, UNK
     Route: 065
  7. EPIPEN [Suspect]
     Active Substance: EPINEPHRINE
     Indication: ANAPHYLACTIC REACTION
     Dosage: 0.3 MG, UNK
     Route: 030
     Dates: start: 20150602, end: 20150602
  8. CYANOCOBALAMIN. [Suspect]
     Active Substance: CYANOCOBALAMIN
     Indication: FATIGUE
     Dosage: 1000 ?G, ONCE FOR A WHILE INTO LEFT SHOULDER
     Route: 030
     Dates: start: 20150602, end: 20150602
  9. VITAMIN B12 [Suspect]
     Active Substance: CYANOCOBALAMIN
     Indication: PRODUCT USED FOR UNKNOWN INDICATION
     Dosage: UNK
     Route: 030

REACTIONS (11)
  - Condition aggravated [Fatal]
  - Rash generalised [Fatal]
  - Pruritus [Fatal]
  - Injection site pruritus [Unknown]
  - Anaphylactic reaction [Fatal]
  - Cardiac arrest [Fatal]
  - Blindness [Fatal]
  - Anaphylactic shock [Fatal]
  - Unresponsive to stimuli [Fatal]
  - Loss of consciousness [Fatal]
  - Sinusitis [Unknown]

NARRATIVE: CASE EVENT DATE: 20150602
